FAERS Safety Report 22848855 (Version 4)
Quarter: 2024Q1

REPORT INFORMATION
  Report Type: Spontaneous
  Country: BG (occurrence: BG)
  Receive Date: 20230822
  Receipt Date: 20240124
  Transmission Date: 20240409
  Serious: Yes (Hospitalization, Disabling, Other)
  Sender: FDA-Public Use
  Company Number: BG-CHEPLA-2023009727

PATIENT
  Age: 86 Year
  Sex: Male

DRUGS (25)
  1. OLANZAPINE [Suspect]
     Active Substance: OLANZAPINE
     Indication: Product used for unknown indication
     Dosage: 0.5 DOSAGE FORM, ONCE A DAY (HALF A TABLET DAILYFROM 6 YEARS)
     Route: 048
  2. BISOPROLOL FUMARATE [Suspect]
     Active Substance: BISOPROLOL FUMARATE
     Indication: Hypertension
     Dosage: 10 MILLIGRAM 2 TIMES HALF A TABLET FROM 10 YEARS (1DOSAGE FORM)
     Route: 048
     Dates: start: 20170615
  3. BISOPROLOL FUMARATE [Suspect]
     Active Substance: BISOPROLOL FUMARATE
     Indication: Atrial fibrillation
     Dosage: 1 DOSAGE FORM (2 TIMES HALF A TABLET FROM 10 YEARS)
     Route: 065
  4. DIGOXIN [Suspect]
     Active Substance: DIGOXIN
     Indication: Product used for unknown indication
     Dosage: 0.5 DOSAGE FORM, ONCE A DAY (1 TIME DAILY HALF A TABLET)
     Route: 048
  5. ELIQUIS [Suspect]
     Active Substance: APIXABAN
     Indication: Product used for unknown indication
     Dosage: 5 MILLIGRAM 2 TIMES HALF A TABLET FROM 2/3 YEARS
     Route: 048
  6. ESOMEPRAZOLE [Suspect]
     Active Substance: ESOMEPRAZOLE
     Indication: Product used for unknown indication
     Dosage: 40 MILLIGRAM ONCE DAILY HALF A TABLET
     Route: 048
  7. ESOMEPRAZOLE [Suspect]
     Active Substance: ESOMEPRAZOLE
     Dosage: 0.5 MILLIGRAM (ONCE DAILY HALF A TABLET)
  8. QUETIAPINE FUMARATE [Suspect]
     Active Substance: QUETIAPINE FUMARATE
     Indication: Product used for unknown indication
     Dosage: 25 MILLIGRAM IN THE EVENING , ONE TO 2 TABLETS, EVERY 2 DAYS FOR 5-6 YEARS
     Route: 048
  9. BROMAZEPAM [Suspect]
     Active Substance: BROMAZEPAM
     Indication: Product used for unknown indication
     Dosage: 3 MILLIGRAM (BROMAZEPAM 3 MG: IN THE EVENING ONE OR HALF A TABLET, EVERY 2 DAYS / FROM 30 YEARS)
     Route: 048
  10. PREGABALIN [Suspect]
     Active Substance: PREGABALIN
     Indication: Product used for unknown indication
     Dosage: 1 DOSAGE FORM, ONCE A DAY (ONE TABLET DAILY)
     Route: 065
  11. PREGABALIN [Suspect]
     Active Substance: PREGABALIN
     Dosage: 75 MILLIGRAM (ONE TABLET DAILY FROM 6 YEARS)
     Route: 065
  12. VENLAFAXINE HYDROCHLORIDE [Suspect]
     Active Substance: VENLAFAXINE HYDROCHLORIDE
     Indication: Product used for unknown indication
     Dosage: 75 MILLIGRAM 2 TIMES ONE TABLET DAILY / FROM 6 YEARS
     Route: 048
  13. VENLAFAXINE HYDROCHLORIDE [Suspect]
     Active Substance: VENLAFAXINE HYDROCHLORIDE
     Dosage: 2 DOSAGE FORM, ONCE A DAY (2 TIMES ONE TABLET DAILY / FROM 6 YEARS)
     Route: 048
  14. ZOPICLONE [Suspect]
     Active Substance: ZOPICLONE
     Indication: Product used for unknown indication
     Dosage: UNK(ONE HALF TO ONE TABLET EVERY TWO DAYS)
     Route: 048
  15. BROMAZEPAM [Concomitant]
     Active Substance: BROMAZEPAM
     Indication: Product used for unknown indication
     Dosage: 0.5 DOSAGE FORM (IN THE EVENING ONE OR HALF A TABLET, EVERY 2 DAYS / FROM 30 YEARS)
     Route: 065
  16. BROMAZEPAM [Concomitant]
     Active Substance: BROMAZEPAM
     Dosage: 1 DOSAGE FORM (IN THE EVENING ONE OR HALF A TABLET, EVERY 2 DAYS / FROM 30 YEARS)
     Route: 065
  17. NEXIUM [Concomitant]
     Active Substance: ESOMEPRAZOLE MAGNESIUM
     Indication: Product used for unknown indication
     Dosage: 0.5 DOSAGE FORM, DAILY (ONCE DAILY HALF A TABLET / FROM 2 YEARS)
     Route: 065
  18. ELIQUIS [Concomitant]
     Active Substance: APIXABAN
     Indication: Atrial fibrillation
     Dosage: 1 DOSAGE FORM (2 TIMES HALF A TABLET FROM 2/3 YEARS)
     Route: 065
  19. ELIQUIS [Concomitant]
     Active Substance: APIXABAN
     Indication: Hypertension
  20. PREGABALIN [Concomitant]
     Active Substance: PREGABALIN
     Indication: Product used for unknown indication
     Dosage: 1 DOSAGE FORM, DAILY (ONE TABLET DAILY / FROM 6 YEARS)
     Route: 065
  21. Hedonin [Concomitant]
     Indication: Product used for unknown indication
     Dosage: 2 DOSAGE FORM (IN THE EVENING , ONE TO 2 TABLETS, EVERY 2 DAYS / FROM 5-6YEARS)
     Route: 065
  22. Hedonin [Concomitant]
     Dosage: 1 DOSAGE FORM (IN THE EVENING , ONE TO 2 TABLETS, EVERY 2 DAYS / FROM 5-6YEARS)
     Route: 065
  23. DIGOXIN [Concomitant]
     Active Substance: DIGOXIN
     Indication: Atrial fibrillation
     Dosage: 0.5 DOSAGE FORM, DAILY (1 TIME DAILY HALF A TABLET)
     Route: 065
  24. ZOPICLONE [Concomitant]
     Active Substance: ZOPICLONE
     Indication: Product used for unknown indication
     Dosage: 0.5 DOSAGE FORM (ONE HALF TO ONE TABLET EVERY TWO DAYS / FROM 1 YEAR)
     Route: 065
  25. ZOPICLONE [Concomitant]
     Active Substance: ZOPICLONE
     Dosage: 1 DOSAGE FORM (ONE HALF TO ONE TABLET EVERY TWO DAYS / FROM 1 YEAR)
     Route: 065

REACTIONS (6)
  - Basal cell carcinoma [Recovered/Resolved with Sequelae]
  - Skin lesion [Unknown]
  - Melanocytic naevus [Unknown]
  - Dysplastic naevus [Recovered/Resolved with Sequelae]
  - Adenoma benign [Recovered/Resolved with Sequelae]
  - Bowen^s disease [Unknown]
